FAERS Safety Report 8792812 (Version 5)
Quarter: 2014Q3

REPORT INFORMATION
  Report Type: Report from Study
  Country: US (occurrence: US)
  Receive Date: 20120918
  Receipt Date: 20140918
  Transmission Date: 20150326
  Serious: Yes (Death)
  Sender: FDA-Public Use
  Company Number: US-GLAXOSMITHKLINE-A0992635B

PATIENT
  Age: 71 Year
  Sex: Male
  Weight: 109 kg

DRUGS (4)
  1. ASPIRIN. [Concomitant]
     Active Substance: ASPIRIN
     Indication: PYREXIA
     Dosage: 300MG PER DAY
     Route: 054
     Dates: start: 20120905, end: 20120906
  2. FLAGYL [Concomitant]
     Active Substance: METRONIDAZOLE\METRONIDAZOLE HYDROCHLORIDE
     Indication: PNEUMONIA
     Dosage: 500MG SINGLE DOSE
     Route: 042
     Dates: start: 20120903, end: 20120903
  3. OFATUMUMAB [Suspect]
     Active Substance: OFATUMUMAB
     Indication: NON-HODGKIN^S LYMPHOMA
     Route: 042
     Dates: start: 20120419, end: 20120712
  4. BENDAMUSTINE [Suspect]
     Active Substance: BENDAMUSTINE
     Indication: NON-HODGKIN^S LYMPHOMA
     Dosage: 90MGM2 CYCLIC
     Route: 042
     Dates: start: 20120419, end: 20120713

REACTIONS (5)
  - Neutrophil count decreased [Recovered/Resolved]
  - Pneumonia [Fatal]
  - Pyrexia [Fatal]
  - Embolism [Fatal]
  - Renal failure acute [Fatal]

NARRATIVE: CASE EVENT DATE: 20120813
